FAERS Safety Report 12224874 (Version 1)
Quarter: 2016Q1

REPORT INFORMATION
  Report Type: Spontaneous
  Country: US (occurrence: US)
  Receive Date: 20160331
  Receipt Date: 20160331
  Transmission Date: 20160526
  Serious: No
  Sender: FDA-Public Use
  Company Number: US-PFIZER INC-2016155894

PATIENT
  Age: 56 Year
  Sex: Female

DRUGS (1)
  1. SUTENT [Suspect]
     Active Substance: SUNITINIB MALATE
     Dosage: 50 MG, CYCLIC (TAKE 1 CAPSULE, DAILY FOR 28 DAYS ON; THEN 14 DAYS OFF )
     Route: 048

REACTIONS (3)
  - Hypertension [Unknown]
  - Weight decreased [Unknown]
  - Oedema peripheral [Unknown]
